FAERS Safety Report 10179574 (Version 1)
Quarter: 2014Q2

REPORT INFORMATION
  Report Type: Other
  Country: CA (occurrence: CA)
  Receive Date: 20140519
  Receipt Date: 20140519
  Transmission Date: 20141212
  Serious: Yes (Other)
  Sender: FDA-Public Use
  Company Number: CA-TARO PHARMACEUTICALS U.S.A., INC-2014SUN01081

PATIENT
  Age: 92 Year
  Sex: Male

DRUGS (8)
  1. TARO-WARFARIN [Suspect]
     Indication: PRODUCT USED FOR UNKNOWN INDICATION
     Dosage: AS REQUIRED
     Route: 048
  2. APO-WARFARIN [Suspect]
     Indication: PRODUCT USED FOR UNKNOWN INDICATION
     Dosage: UNK, PRN
     Route: 048
  3. AMIODARONE [Concomitant]
  4. BISOPROLOL [Concomitant]
  5. COUMADIN [Concomitant]
  6. LOSEC [Concomitant]
     Dosage: 20 MG, UNK
  7. NITRO-DUR [Concomitant]
     Dosage: 0.4 MG, HOURLY
  8. SYNTHROID [Concomitant]

REACTIONS (2)
  - International normalised ratio fluctuation [Unknown]
  - Product substitution issue [Unknown]
